FAERS Safety Report 7072270-5 (Version None)
Quarter: 2010Q4

REPORT INFORMATION
  Report Type: 
  Country: None (occurrence: None)
  Receive Date: 20101029
  Receipt Date: 20101018
  Transmission Date: 20110411
  Serious: Yes (Other)
  Sender: FDA-Public Use
  Company Number: PHFR2010GB04840

PATIENT

DRUGS (10)
  1. SANDIMMUNE [Suspect]
     Indication: BONE MARROW TRANSPLANT
     Dosage: 385 MG, UNK
     Route: 042
     Dates: start: 20100913
  2. ACYCLOVIR [Concomitant]
     Dosage: 400 MG, TID
     Route: 048
  3. AMBISOME [Concomitant]
     Dosage: 250 MG, UNK
     Route: 042
  4. CIPROFLOXACIN [Concomitant]
     Dosage: 250 MG, BID
  5. CLONAZEPAM [Concomitant]
     Dosage: 500 UG, QD
  6. METOCLOPRAMIDE [Concomitant]
     Dosage: 10 MG, TID
     Route: 048
  7. NOZINAN [Concomitant]
     Dosage: 6.25 MG, TID
     Route: 048
  8. NYSTATIN [Concomitant]
     Dosage: 1 ML, QID
     Route: 048
  9. OMEPRAZOLE [Concomitant]
     Dosage: 20 MG, QD
     Route: 048
  10. ONDANSETRON [Concomitant]
     Dosage: 8 MG, BID
     Route: 048

REACTIONS (4)
  - BLOOD PRESSURE DECREASED [None]
  - BRADYCARDIA [None]
  - DIZZINESS [None]
  - OXYGEN SATURATION DECREASED [None]
